FAERS Safety Report 10846932 (Version 1)
Quarter: 2015Q1

REPORT INFORMATION
  Report Type: Spontaneous
  Country: US (occurrence: US)
  Receive Date: 20150220
  Receipt Date: 20150220
  Transmission Date: 20150721
  Serious: No
  Sender: FDA-Public Use
  Company Number: US-ELI_LILLY_AND_COMPANY-US201502001857

PATIENT
  Sex: Female

DRUGS (1)
  1. INSULIN HUMAN [Suspect]
     Active Substance: INSULIN HUMAN
     Indication: PRODUCT USED FOR UNKNOWN INDICATION
     Dosage: 150 U, UNKNOWN
     Route: 065

REACTIONS (4)
  - Nightmare [Unknown]
  - Somnambulism [Unknown]
  - Hypoglycaemia [Unknown]
  - Amenorrhoea [Unknown]
